FAERS Safety Report 10460057 (Version 2)
Quarter: 2014Q3

REPORT INFORMATION
  Report Type: Report from Study
  Country: BE (occurrence: BE)
  Receive Date: 20140917
  Receipt Date: 20140917
  Transmission Date: 20150326
  Serious: Yes (Death, Other)
  Sender: FDA-Public Use
  Company Number: BE-ABBVIE-13P-013-1040939-00

PATIENT
  Age: 72 Year
  Sex: Male

DRUGS (7)
  1. LUPRON DEPOT [Suspect]
     Active Substance: LEUPROLIDE ACETATE
     Indication: PRODUCT USED FOR UNKNOWN INDICATION
     Dosage: CD: 1.9ML/HR
     Dates: start: 20111004
  2. DUODOPA [Suspect]
     Active Substance: CARBIDOPA\LEVODOPA
     Dosage: CONTINUOUSLY MONITORED AND ADJUSTED
     Route: 050
     Dates: start: 20100607, end: 20111025
  3. DUODOPA [Suspect]
     Active Substance: CARBIDOPA\LEVODOPA
     Dosage: AM DOSE = 4.5 ML, CONTINUOUS DOSE = 3.2 ML/H DURING 16 HRS, EXTRA DOSE = 2 ML.
     Route: 050
     Dates: start: 20100531, end: 20100607
  4. DUODOPA [Suspect]
     Active Substance: CARBIDOPA\LEVODOPA
     Dosage: AM = 3 ML, CONTIN DOSE = 1.9 ML/H DURING 16H, EXTRA DOSE = 1.1ML
     Route: 050
     Dates: start: 20131023, end: 20140912
  5. DUODOPA [Suspect]
     Active Substance: CARBIDOPA\LEVODOPA
     Route: 050
     Dates: start: 20090309, end: 20100531
  6. DUODOPA [Suspect]
     Active Substance: CARBIDOPA\LEVODOPA
     Indication: PARKINSON^S DISEASE
     Route: 050
     Dates: start: 20071206
  7. DUODOPA [Suspect]
     Active Substance: CARBIDOPA\LEVODOPA
     Dosage: AM DOSE = 4.5 ML, CONTINUOUS DOSE = 2.7 ML/H DURING 16 HRS, EXTRA DOSE = 1.4 ML
     Route: 050
     Dates: start: 20111025, end: 20131023

REACTIONS (6)
  - General physical health deterioration [Fatal]
  - Metastases to bone [Fatal]
  - Polyp [Unknown]
  - Bedridden [Unknown]
  - Prostate cancer [Unknown]
  - Prostatic specific antigen increased [Unknown]

NARRATIVE: CASE EVENT DATE: 20110804
